FAERS Safety Report 19041187 (Version 1)
Quarter: 2021Q1

REPORT INFORMATION
  Report Type: Spontaneous
  Country: US (occurrence: US)
  Receive Date: 20210322
  Receipt Date: 20210322
  Transmission Date: 20210420
  Serious: No
  Sender: FDA-Public Use
  Company Number: US-BAYER-2021-104287

PATIENT
  Age: 86 Year

DRUGS (2)
  1. MIRALAX [Suspect]
     Active Substance: POLYETHYLENE GLYCOL 3350
     Dosage: 0.5 DF, QD
     Route: 065
  2. MIRALAX [Suspect]
     Active Substance: POLYETHYLENE GLYCOL 3350
     Dosage: 0.25 DF, QD

REACTIONS (4)
  - Incorrect dose administered [Unknown]
  - Diarrhoea [Unknown]
  - Frequent bowel movements [Unknown]
  - Flatulence [Unknown]

NARRATIVE: CASE EVENT DATE: 202103
